FAERS Safety Report 5371342-0 (Version None)
Quarter: 2007Q2

REPORT INFORMATION
  Report Type: 
  Country: None (occurrence: None)
  Receive Date: 20070622
  Receipt Date: 20070608
  Transmission Date: 20071010
  Serious: Yes (Hospitalization, Congenital Anomaly, Other)
  Sender: FDA-Public Use
  Company Number: 6034422

PATIENT

DRUGS (1)
  1. DIANBEN (METFORMIN) [Suspect]
     Indication: POLYCYSTIC OVARIES
     Dosage: 1, 7 GM TRANSPLACENTAL
     Route: 064
     Dates: end: 20070112

REACTIONS (2)
  - DRUG EXPOSURE DURING PREGNANCY [None]
  - OESOPHAGEAL ATRESIA [None]
